FAERS Safety Report 5149030-5 (Version None)
Quarter: 2006Q4

REPORT INFORMATION
  Report Type: 
  Country: None (occurrence: None)
  Receive Date: 20061113
  Receipt Date: 20061030
  Transmission Date: 20070319
  Serious: Yes (Other)
  Sender: FDA-Public Use
  Company Number: PHBS2006IT17146

PATIENT
  Age: 60 Year
  Sex: Female

DRUGS (1)
  1. ESTROGENS SOL/INJ [Suspect]
     Indication: HORMONE REPLACEMENT THERAPY

REACTIONS (1)
  - PHLEBITIS SUPERFICIAL [None]
